FAERS Safety Report 5667915-8 (Version None)
Quarter: 2008Q1

REPORT INFORMATION
  Report Type: 
  Country: None (occurrence: None)
  Receive Date: 20080315
  Receipt Date: 20080206
  Transmission Date: 20080703
  Serious: No
  Sender: FDA-Public Use
  Company Number: US-ABBOTT-08P-163-0437171-00

PATIENT
  Sex: Male
  Weight: 104.42 kg

DRUGS (9)
  1. HUMIRA [Suspect]
     Indication: RHEUMATOID ARTHRITIS
     Route: 058
     Dates: start: 20061101, end: 20071201
  2. HUMIRA [Suspect]
     Route: 058
     Dates: start: 20071201, end: 20080129
  3. HUMIRA [Suspect]
     Route: 058
     Dates: start: 20080129
  4. FUROSEMIDE [Concomitant]
     Indication: FLUID RETENTION
     Route: 048
     Dates: start: 20070101
  5. POTASSIUM CHLORIDE [Concomitant]
     Indication: MINERAL SUPPLEMENTATION
     Route: 048
     Dates: start: 20070101
  6. NAPROXEN SODIUM [Concomitant]
     Indication: PAIN
     Route: 048
     Dates: start: 20070101
  7. MORNIFLUMATE [Concomitant]
     Indication: PROSTATIC DISORDER
     Route: 048
     Dates: start: 20060801
  8. ALLOPURINOL [Concomitant]
     Indication: PROSTATIC DISORDER
     Route: 048
     Dates: start: 20060801
  9. SERTRALINE [Concomitant]
     Indication: INSOMNIA
     Route: 048
     Dates: start: 20070101

REACTIONS (1)
  - DRUG INEFFECTIVE [None]
